FAERS Safety Report 21004785 (Version 2)
Quarter: 2022Q3

REPORT INFORMATION
  Report Type: Spontaneous
  Country: TH (occurrence: TH)
  Receive Date: 20220624
  Receipt Date: 20220628
  Transmission Date: 20221027
  Serious: Yes (Other)
  Sender: FDA-Public Use
  Company Number: TH-NOVARTISPH-NVSC2022TH140862

PATIENT
  Age: 65 Year
  Sex: Female
  Weight: 52 kg

DRUGS (11)
  1. SACUBITRIL\VALSARTAN [Suspect]
     Active Substance: SACUBITRIL\VALSARTAN
     Indication: Product used for unknown indication
     Dosage: 0.25 DOSAGE FORM, BID, QUARTER OF TABLET (AFTER MEAL IMMEDIATELY, TWICE DAILY AFTER BREAKFAST AND DI
     Route: 048
     Dates: start: 20190906
  2. SACUBITRIL\VALSARTAN [Suspect]
     Active Substance: SACUBITRIL\VALSARTAN
     Dosage: 100 MG, BID (AFTER MEAL IMMEDIATELY TWICE DAILY AFTER BREAKFAST AND DINNER)
     Route: 048
     Dates: start: 20211215
  3. CARVEDILOL [Concomitant]
     Active Substance: CARVEDILOL
     Indication: Product used for unknown indication
     Dosage: 0.5 DOSAGE FORM, BID STRENGTH (6.25MG) (AFTER BREAKFAT AND DINNER, 15 TABLETS)
     Route: 048
  4. CARVEDILOL [Concomitant]
     Active Substance: CARVEDILOL
     Dosage: 1 DOSAGE FORM, BID, STRENGTH 25MG (AFTER BREAKFAST AND DINNER 310 TABLET)
     Route: 048
  5. SPIRONOLACTONE [Concomitant]
     Active Substance: SPIRONOLACTONE
     Indication: Blood pressure decreased
     Dosage: 0.5 DOSAGE FORM, QD (AFTER BREAKFAST 8 TABLETS)
     Route: 048
  6. ASPIRIN [Concomitant]
     Active Substance: ASPIRIN
     Indication: Embolism
     Dosage: 1 DOSAGE FORM, QD (AFTER BREAKFAST 15 TABLETS)
     Route: 048
  7. FUROSEMIDE [Concomitant]
     Active Substance: FUROSEMIDE
     Indication: Diuretic therapy
     Dosage: 0.25 MG, QD (AFTER BREAKFAST 4 TABLET)
     Route: 048
  8. FUROSEMIDE [Concomitant]
     Active Substance: FUROSEMIDE
     Indication: Blood pressure decreased
  9. VITAMIN B COMPLEX [Concomitant]
     Active Substance: CYANOCOBALAMIN\DEXPANTHENOL\NIACINAMIDE\PYRIDOXINE HYDROCHLORIDE\RIBOFLAVIN 5^-PHOSPHATE SODIUM\THIA
     Indication: Vitamin supplementation
     Dosage: 1 DOSAGE FORM, BID (AFTER BREAKFAST AND DINNER 30 TABLET)
     Route: 048
  10. EZETIMIBE [Concomitant]
     Active Substance: EZETIMIBE
     Indication: Product used for unknown indication
     Dosage: 1 DOSAGE FORM, QD (AT BED TIME 155 TABLET)
     Route: 048
  11. ROSUVASTATIN [Concomitant]
     Active Substance: ROSUVASTATIN
     Indication: Product used for unknown indication
     Dosage: 0.5 DOSAGE FORM, QD (AFTER BREAKFAST 78 TABLET)
     Route: 048

REACTIONS (12)
  - Congestive cardiomyopathy [Unknown]
  - Ventricular septal defect [Unknown]
  - Ventricular hypertrophy [Unknown]
  - Hypotension [Unknown]
  - B-cell lymphoma [Unknown]
  - Oropharyngeal pain [Unknown]
  - Mass [Unknown]
  - Lymphadenopathy [Unknown]
  - Pyrexia [Unknown]
  - Body mass index increased [Unknown]
  - Underdose [Unknown]
  - Wrong technique in product usage process [Unknown]
